FAERS Safety Report 19795369 (Version 2)
Quarter: 2021Q3

REPORT INFORMATION
  Report Type: Spontaneous
  Country: NL (occurrence: NL)
  Receive Date: 20210907
  Receipt Date: 20210918
  Transmission Date: 20211014
  Serious: Yes (Other)
  Sender: FDA-Public Use
  Company Number: NL-AUROBINDO-AUR-APL-2021-037976

PATIENT
  Age: 25 Year
  Sex: Female
  Weight: 67 kg

DRUGS (2)
  1. AMOXICILLIN+CLAVULANIC ACID FILM COATED TABLETS 500/125 MG [Suspect]
     Active Substance: AMOXICILLIN\CLAVULANIC ACID
     Indication: WISDOM TEETH REMOVAL
     Dosage: 1 DOSAGE FORM, 3 TIMES A DAY (1 PIECE)
     Route: 065
     Dates: start: 20210628
  2. COMIRNATY [Suspect]
     Active Substance: TOZINAMERAN
     Indication: COVID-19 IMMUNISATION
     Dosage: 1 DOSAGE FORM
     Route: 065
     Dates: start: 20210701

REACTIONS (8)
  - Myalgia [Recovered/Resolved]
  - Injection site swelling [Recovered/Resolved]
  - Injection site pain [Recovered/Resolved]
  - Headache [Recovered/Resolved]
  - Injection site inflammation [Recovered/Resolved]
  - Pyrexia [Recovered/Resolved]
  - Malaise [Recovered/Resolved]
  - Fatigue [Recovered/Resolved]

NARRATIVE: CASE EVENT DATE: 20210701
